FAERS Safety Report 13110375 (Version 1)
Quarter: 2017Q1

REPORT INFORMATION
  Report Type: Spontaneous
  Country: US (occurrence: US)
  Receive Date: 20170112
  Receipt Date: 20170112
  Transmission Date: 20170428
  Serious: No
  Sender: FDA-Public Use
  Company Number: US-ROCHE-1100533

PATIENT
  Age: 63 Year
  Sex: Female

DRUGS (8)
  1. HEPARIN [Concomitant]
     Active Substance: HEPARIN SODIUM
     Dosage: 5000 UNITS
     Route: 040
  2. ACTIVASE [Suspect]
     Active Substance: ALTEPLASE
     Indication: ACUTE MYOCARDIAL INFARCTION
     Route: 040
  3. MS [Concomitant]
     Active Substance: MORPHINE SULFATE
     Route: 042
  4. MS [Concomitant]
     Active Substance: MORPHINE SULFATE
     Route: 042
  5. LIDOCAINE. [Concomitant]
     Active Substance: LIDOCAINE
     Dosage: 100
     Route: 042
  6. DIAZEPAM. [Concomitant]
     Active Substance: DIAZEPAM
     Route: 042
  7. LIDOCAINE. [Concomitant]
     Active Substance: LIDOCAINE
     Dosage: 1 MG/MIN AT 1500 CC/HOUR
     Route: 065
  8. ASA [Concomitant]
     Active Substance: ASPIRIN
     Route: 048

REACTIONS (3)
  - Back pain [Unknown]
  - Nausea [Unknown]
  - Chest discomfort [Unknown]
